FAERS Safety Report 6705266-0 (Version None)
Quarter: 2010Q2

REPORT INFORMATION
  Report Type: 
  Country: None (occurrence: None)
  Receive Date: 20100430
  Receipt Date: 20100423
  Transmission Date: 20101027
  Serious: Yes (Other)
  Sender: FDA-Public Use
  Company Number: US-AMGEN-QUU408210

PATIENT
  Sex: Male

DRUGS (2)
  1. SENSIPAR [Suspect]
     Indication: HYPERPARATHYROIDISM SECONDARY
  2. UNSPECIFIED MEDICATION [Concomitant]

REACTIONS (2)
  - SWOLLEN TONGUE [None]
  - TONGUE NEOPLASM MALIGNANT STAGE UNSPECIFIED [None]
